FAERS Safety Report 14668885 (Version 7)
Quarter: 2018Q2

REPORT INFORMATION
  Report Type: Report from Study
  Country: US (occurrence: US)
  Receive Date: 20180322
  Receipt Date: 20180510
  Transmission Date: 20180711
  Serious: Yes (Hospitalization)
  Sender: FDA-Public Use
  Company Number: US-ACTELION-A-NJ2018-169125

PATIENT
  Age: 68 Year
  Sex: Female
  Weight: 98.41 kg

DRUGS (2)
  1. VELETRI [Suspect]
     Active Substance: EPOPROSTENOL
     Indication: PULMONARY ARTERIAL HYPERTENSION
     Dosage: 7 NG/KG, PER MIN
     Route: 042
  2. VELETRI [Suspect]
     Active Substance: EPOPROSTENOL
     Dosage: 10 NG/KG, PER MIN
     Route: 042

REACTIONS (18)
  - Incorrect dose administered [Unknown]
  - Pain in jaw [Not Recovered/Not Resolved]
  - Nasopharyngitis [Not Recovered/Not Resolved]
  - Myalgia [Unknown]
  - Malaise [Recovering/Resolving]
  - Pulmonary arterial hypertension [Recovering/Resolving]
  - Pain [Not Recovered/Not Resolved]
  - Cerebrovascular accident [Recovering/Resolving]
  - Weight increased [Unknown]
  - Device issue [Recovering/Resolving]
  - Dizziness [Recovering/Resolving]
  - Bone pain [Not Recovered/Not Resolved]
  - Headache [Unknown]
  - Drooling [Recovering/Resolving]
  - Hypoxia [Unknown]
  - Nausea [Unknown]
  - Catheter site pruritus [Unknown]
  - Pulmonary hypertension [Unknown]
